FAERS Safety Report 19822857 (Version 4)
Quarter: 2022Q1

REPORT INFORMATION
  Report Type: Report from Study
  Country: JP (occurrence: JP)
  Receive Date: 20210913
  Receipt Date: 20220222
  Transmission Date: 20220423
  Serious: Yes (Death, Hospitalization)
  Sender: FDA-Public Use
  Company Number: JP-JNJFOC-20210909970

PATIENT
  Age: 31 Year
  Sex: Female

DRUGS (29)
  1. MACITENTAN [Suspect]
     Active Substance: MACITENTAN
     Indication: Pulmonary arterial hypertension
     Dosage: IN THE MORNING
     Route: 048
     Dates: start: 20190403, end: 20190528
  2. FLOLAN [Suspect]
     Active Substance: EPOPROSTENOL SODIUM
     Indication: Pulmonary arterial hypertension
     Route: 041
     Dates: start: 20190509, end: 20190521
  3. PREDONINE [Suspect]
     Active Substance: PREDNISOLONE
     Indication: Mixed connective tissue disease
     Route: 048
     Dates: start: 2015, end: 20190415
  4. PREDONINE [Suspect]
     Active Substance: PREDNISOLONE
     Route: 048
     Dates: start: 2019
  5. PREDONINE [Suspect]
     Active Substance: PREDNISOLONE
     Route: 048
     Dates: start: 20190416, end: 20190504
  6. PREDONINE [Suspect]
     Active Substance: PREDNISOLONE
     Route: 048
     Dates: start: 20190505, end: 20190511
  7. PREDONINE [Suspect]
     Active Substance: PREDNISOLONE
     Dosage: 20 N THE MORNING, 10MG IN THE AFTERNOON
     Route: 048
     Dates: start: 20190512, end: 20190519
  8. PREDONINE [Suspect]
     Active Substance: PREDNISOLONE
     Dosage: 20MG IN THE MORNING,5MG IN THE AFTERNOON
     Route: 048
     Dates: start: 20190520, end: 20190526
  9. PREDONINE [Suspect]
     Active Substance: PREDNISOLONE
     Dosage: IN THE MORNING AND AFTERNOON
     Route: 048
     Dates: start: 20190527, end: 20190604
  10. PREDONINE [Suspect]
     Active Substance: PREDNISOLONE
     Dosage: 10MG IN THE MORNING,5MG IN THE AFTERNOON
     Route: 048
     Dates: start: 20190605, end: 20190618
  11. PREDONINE [Suspect]
     Active Substance: PREDNISOLONE
     Dosage: IN THE MORNING
     Route: 048
     Dates: start: 20190619, end: 20190625
  12. PREDONINE [Suspect]
     Active Substance: PREDNISOLONE
     Dosage: IN THE MORNING
     Route: 048
     Dates: start: 20190626, end: 20191113
  13. TREPROSTINIL [Concomitant]
     Active Substance: TREPROSTINIL
     Indication: Pulmonary arterial hypertension
     Dosage: 10.1NG/KG/MIN
     Route: 042
     Dates: start: 20190521
  14. NEXIUM [Concomitant]
     Active Substance: ESOMEPRAZOLE MAGNESIUM
     Indication: Gastrooesophageal reflux disease
     Route: 048
     Dates: start: 2015
  15. ALFACALCIDOL [Concomitant]
     Active Substance: ALFACALCIDOL
     Indication: Osteoporosis
     Route: 048
     Dates: start: 2015
  16. SULFAMETHOXAZOLE\TRIMETHOPRIM [Concomitant]
     Active Substance: SULFAMETHOXAZOLE\TRIMETHOPRIM
     Indication: Prophylaxis
     Route: 048
     Dates: start: 2015
  17. EPINASTINE HYDROCHLORIDE [Concomitant]
     Active Substance: EPINASTINE HYDROCHLORIDE
     Indication: Asthma
     Route: 048
     Dates: start: 2015
  18. URSODIOL [Concomitant]
     Active Substance: URSODIOL
     Indication: Prophylaxis
     Route: 048
     Dates: start: 20190503
  19. AMBRISENTAN [Concomitant]
     Active Substance: AMBRISENTAN
     Indication: Pulmonary arterial hypertension
     Route: 048
     Dates: start: 20190528
  20. POTASSIUM ASPARTATE [Concomitant]
     Active Substance: POTASSIUM ASPARTATE
     Indication: Hypokalaemia
     Route: 048
     Dates: start: 20190524
  21. EVOCALCET [Concomitant]
     Active Substance: EVOCALCET
     Indication: Osteoporosis
     Route: 048
     Dates: start: 2015
  22. EVOCALCET [Concomitant]
     Active Substance: EVOCALCET
     Indication: Chronic kidney disease-mineral and bone disorder
  23. NIFEDIPINE [Concomitant]
     Active Substance: NIFEDIPINE
     Indication: Hypertension
     Route: 048
     Dates: start: 2015, end: 20190518
  24. FERRIC CITRATE ANHYDROUS [Concomitant]
     Active Substance: FERRIC CITRATE ANHYDROUS
     Indication: Hyperphosphataemia
     Route: 048
     Dates: start: 2015
  25. ATORVASTATIN [Concomitant]
     Active Substance: ATORVASTATIN
     Indication: Hyperlipidaemia
     Route: 048
     Dates: start: 2015
  26. PROGRAF [Concomitant]
     Active Substance: TACROLIMUS
     Indication: Mixed connective tissue disease
     Route: 048
     Dates: start: 2015
  27. ADEMPAS [Concomitant]
     Active Substance: RIOCIGUAT
     Indication: Pulmonary arterial hypertension
     Route: 048
     Dates: start: 20190403
  28. MAGNESIUM OXIDE [Concomitant]
     Active Substance: MAGNESIUM OXIDE
     Indication: Constipation
     Route: 048
     Dates: start: 20190414
  29. FUROSEMIDE [Concomitant]
     Active Substance: FUROSEMIDE
     Indication: Right ventricular failure
     Route: 048
     Dates: start: 2015

REACTIONS (6)
  - Cardiac failure acute [Fatal]
  - Platelet count decreased [Not Recovered/Not Resolved]
  - Melaena [Recovering/Resolving]
  - Lower gastrointestinal haemorrhage [Recovering/Resolving]
  - Small intestine polyp [Recovering/Resolving]
  - Hepatic function abnormal [Recovering/Resolving]

NARRATIVE: CASE EVENT DATE: 20190501
